FAERS Safety Report 5131422-1 (Version None)
Quarter: 2006Q4

REPORT INFORMATION
  Report Type: 
  Country: None (occurrence: None)
  Receive Date: 20061020
  Receipt Date: 20061010
  Transmission Date: 20070319
  Serious: Yes (Hospitalization)
  Sender: FDA-Public Use
  Company Number: FR-GLAXOSMITHKLINE-B0442091A

PATIENT
  Age: 22 Year
  Sex: Female

DRUGS (1)
  1. DEROXAT [Suspect]
     Dosage: 20MG PER DAY
     Route: 048
     Dates: start: 20060914, end: 20060921

REACTIONS (8)
  - ASTHENIA [None]
  - COORDINATION ABNORMAL [None]
  - DRY MOUTH [None]
  - GAIT DISTURBANCE [None]
  - MALAISE [None]
  - MUSCLE CONTRACTURE [None]
  - SEROTONIN SYNDROME [None]
  - SPEECH DISORDER [None]
